FAERS Safety Report 11547816 (Version 1)
Quarter: 2015Q3

REPORT INFORMATION
  Report Type: Spontaneous
  Country: US (occurrence: US)
  Receive Date: 20150924
  Receipt Date: 20150924
  Transmission Date: 20151125
  Serious: Yes (Other)
  Sender: FDA-Public Use
  Company Number: US-SA-2015SA142645

PATIENT
  Age: 73 Year
  Sex: Male

DRUGS (2)
  1. NPH INSULIN [Concomitant]
     Active Substance: INSULIN BEEF
     Dosage: FREQUENCY: WITH EACH MEAL DOSE:15 UNIT(S)
  2. LANTUS [Suspect]
     Active Substance: INSULIN GLARGINE
     Indication: TYPE 1 DIABETES MELLITUS
     Dosage: DOSE:30 UNIT(S)
     Route: 065
     Dates: start: 2010

REACTIONS (5)
  - Fall [Unknown]
  - Blood glucose increased [Unknown]
  - Concussion [Recovered/Resolved]
  - Hypoglycaemic seizure [Recovered/Resolved]
  - Blood glucose decreased [Recovered/Resolved]

NARRATIVE: CASE EVENT DATE: 2011
